FAERS Safety Report 23534876 (Version 2)
Quarter: 2024Q1

REPORT INFORMATION
  Report Type: Spontaneous
  Country: PL (occurrence: PL)
  Receive Date: 20240217
  Receipt Date: 20240306
  Transmission Date: 20240410
  Serious: Yes (Death, Life-Threatening, Hospitalization, Other)
  Sender: FDA-Public Use
  Company Number: PL-MLMSERVICE-20240130-4800996-1

PATIENT
  Age: 73 Year
  Sex: Female
  Weight: 92 kg

DRUGS (3)
  1. CISPLATIN [Suspect]
     Active Substance: CISPLATIN
     Indication: Adenocarcinoma
     Dosage: 40 MG/M2 BODY SURFACE AREA, WEEKLY,BODY SURFACE AREA
     Dates: start: 2019, end: 2019
  2. SALINE [Concomitant]
     Active Substance: SODIUM CHLORIDE
     Dates: start: 2019, end: 2019
  3. CISPLATIN [Suspect]
     Active Substance: CISPLATIN
     Indication: Nasopharyngeal cancer
     Dosage: 40 MG/M2 BODY SURFACE AREA, WEEKLY,BODY SURFACE AREA
     Dates: start: 2019, end: 2019

REACTIONS (4)
  - Lymphopenia [Fatal]
  - Thrombocytopenia [Fatal]
  - Stomatitis [Fatal]
  - Conjunctivitis [Fatal]

NARRATIVE: CASE EVENT DATE: 20190101
